FAERS Safety Report 19241293 (Version 1)
Quarter: 2021Q2

REPORT INFORMATION
  Report Type: Spontaneous
  Country: US (occurrence: US)
  Receive Date: 20210511
  Receipt Date: 20210511
  Transmission Date: 20210717
  Serious: Yes (Hospitalization)
  Sender: FDA-Public Use
  Company Number: None

PATIENT
  Age: 55 Year
  Sex: Male
  Weight: 76.7 kg

DRUGS (1)
  1. CISPLATIN. [Suspect]
     Active Substance: CISPLATIN
     Indication: PANCYTOPENIA
     Dates: end: 20210414

REACTIONS (5)
  - Pharyngeal haemorrhage [None]
  - Mouth haemorrhage [None]
  - Cough [None]
  - Epistaxis [None]
  - Abdominal discomfort [None]

NARRATIVE: CASE EVENT DATE: 20210502
